FAERS Safety Report 5636391-3 (Version None)
Quarter: 2008Q1

REPORT INFORMATION
  Report Type: 
  Country: None (occurrence: None)
  Receive Date: 20080225
  Receipt Date: 20071128
  Transmission Date: 20080703
  Serious: No
  Sender: FDA-Public Use
  Company Number: A0696296A

PATIENT
  Age: 51 Year
  Sex: Female

DRUGS (7)
  1. VERAMYST [Suspect]
     Dosage: 2SPR PER DAY
     Route: 045
     Dates: start: 20070829
  2. ARIMIDEX [Concomitant]
  3. AUGMENTIN '125' [Concomitant]
  4. TYLENOL W/ CODEINE NO. 3 [Concomitant]
  5. TOBRADEX [Concomitant]
  6. ZOCOR [Concomitant]
  7. SYNTHROID [Concomitant]

REACTIONS (1)
  - ALOPECIA [None]
